FAERS Safety Report 10754653 (Version 1)
Quarter: 2015Q1

REPORT INFORMATION
  Report Type: Spontaneous
  Country: US (occurrence: None)
  Receive Date: 20150130
  Receipt Date: 20150130
  Transmission Date: 20150721
  Serious: Yes (Other)
  Sender: FDA-Public Use
  Company Number: None

PATIENT
  Age: 31 Year
  Sex: Female
  Weight: 66.23 kg

DRUGS (1)
  1. PROPOFOL. [Suspect]
     Active Substance: PROPOFOL
     Indication: SEDATIVE THERAPY
     Dosage: INTO A VEIN

REACTIONS (4)
  - Pyrexia [None]
  - Pain [None]
  - Pulmonary oedema [None]
  - Chills [None]

NARRATIVE: CASE EVENT DATE: 20150127
